FAERS Safety Report 8299280-4 (Version None)
Quarter: 2012Q2

REPORT INFORMATION
  Report Type: 
  Country: None (occurrence: None)
  Receive Date: 20120419
  Receipt Date: 20120417
  Transmission Date: 20120825
  Serious: Yes (Other)
  Sender: FDA-Public Use
  Company Number: US-PFIZER INC-2012022008

PATIENT
  Sex: Male
  Weight: 90.703 kg

DRUGS (1)
  1. LIPITOR [Suspect]
     Indication: CARDIAC DISORDER
     Dosage: 80 MG, DAILY
     Route: 048
     Dates: start: 20100315

REACTIONS (3)
  - ROAD TRAFFIC ACCIDENT [None]
  - BRAIN INJURY [None]
  - MEMORY IMPAIRMENT [None]
